FAERS Safety Report 5109633-0 (Version None)
Quarter: 2006Q3

REPORT INFORMATION
  Report Type: 
  Country: None (occurrence: None)
  Receive Date: 20060918
  Receipt Date: 20060904
  Transmission Date: 20061208
  Serious: Yes (Other)
  Sender: FDA-Public Use
  Company Number: 2006088019

PATIENT
  Age: 53 Year
  Sex: Female
  Weight: 70 kg

DRUGS (8)
  1. NEURONTIN [Suspect]
     Indication: BREAST PAIN
     Dosage: 1800 MG (600 MG, 3 IN 1 D), ORAL
     Route: 048
     Dates: start: 20040301
  2. NEURONTIN [Suspect]
     Indication: MUSCULOSKELETAL CHEST PAIN
     Dosage: 1800 MG (600 MG, 3 IN 1 D), ORAL
     Route: 048
     Dates: start: 20040301
  3. NEURONTIN [Suspect]
     Indication: NEURALGIA
     Dosage: 1800 MG (600 MG, 3 IN 1 D), ORAL
     Route: 048
     Dates: start: 20040301
  4. LYRICA [Suspect]
     Indication: DRUG USE FOR UNKNOWN INDICATION
  5. TEGRETOL [Suspect]
     Indication: DRUG USE FOR UNKNOWN INDICATION
  6. ALL OTHER THERAPEUTIC PRODUCTS (ALL OTHER THERAPEUTIC PRODUCTS) [Concomitant]
  7. AMITRIPTYLINE HCL [Concomitant]
  8. TYLEX (CARBINOXAMINE MALEATE, PARACETAMOL, PHENYLEPHRINE HYDROCHLORIDE [Concomitant]

REACTIONS (12)
  - ARTHRALGIA [None]
  - DRUG INEFFECTIVE [None]
  - EAR DISCOMFORT [None]
  - HEARING IMPAIRED [None]
  - HYPOAESTHESIA [None]
  - MUSCULAR WEAKNESS [None]
  - ONYCHALGIA [None]
  - PAIN IN EXTREMITY [None]
  - PHARYNGEAL OEDEMA [None]
  - SPEECH DISORDER [None]
  - SWELLING FACE [None]
  - SWOLLEN TONGUE [None]
